FAERS Safety Report 25085721 (Version 1)
Quarter: 2025Q1

REPORT INFORMATION
  Report Type: Report from Study
  Country: KR (occurrence: KR)
  Receive Date: 20250317
  Receipt Date: 20250317
  Transmission Date: 20250408
  Serious: Yes (Hospitalization)
  Sender: TAKEDA
  Company Number: KR-TAKEDA-2025TUS025711

PATIENT
  Age: 64 Year
  Sex: Female
  Weight: 76.9 kg

DRUGS (11)
  1. BRIGATINIB [Suspect]
     Active Substance: BRIGATINIB
     Indication: Non-small cell lung cancer
     Dosage: 90 MILLIGRAM, QD
     Dates: start: 20240423, end: 20240429
  2. BRIGATINIB [Suspect]
     Active Substance: BRIGATINIB
     Dosage: 180 MILLIGRAM, QD
     Dates: start: 20240430
  3. Dukarb [Concomitant]
     Indication: Hypertension
     Dosage: UNK UNK, QD
     Dates: start: 20231207
  4. SYNTHROID [Concomitant]
     Active Substance: LEVOTHYROXINE SODIUM
     Indication: Hypothyroidism
     Dosage: UNK UNK, QD
     Dates: start: 20231207
  5. LAFUTIDINE [Concomitant]
     Active Substance: LAFUTIDINE
     Indication: Gastritis prophylaxis
     Dosage: UNK UNK, BID
     Dates: start: 20240423
  6. Mucosta sr [Concomitant]
     Indication: Gastritis prophylaxis
     Dosage: UNK UNK, BID
     Dates: start: 20240423
  7. ACETYLCYSTEINE [Concomitant]
     Active Substance: ACETYLCYSTEINE
     Indication: Prophylaxis
     Dosage: UNK UNK, TID
     Dates: start: 20250205
  8. LEVODROPROPIZINE [Concomitant]
     Active Substance: LEVODROPROPIZINE
     Indication: Prophylaxis
     Dosage: 180 MILLIGRAM, TID
     Dates: start: 20250116
  9. CODEINE PHOSPHATE [Concomitant]
     Active Substance: CODEINE PHOSPHATE
     Indication: Prophylaxis
     Dosage: UNK UNK, TID
     Dates: start: 20250116
  10. Cresnon [Concomitant]
     Indication: Hyperlipidaemia
     Dosage: UNK UNK, QD
     Dates: start: 20240821
  11. DIETARY SUPPLEMENT\HERBALS\MILK THISTLE [Concomitant]
     Active Substance: MILK THISTLE
     Indication: Liver function test increased
     Dosage: UNK UNK, TID
     Dates: start: 20240626

REACTIONS (1)
  - Haemoptysis [Recovered/Resolved]

NARRATIVE: CASE EVENT DATE: 20250210
